FAERS Safety Report 5211413-2 (Version None)
Quarter: 2006Q4

REPORT INFORMATION
  Report Type: 
  Country: None (occurrence: None)
  Receive Date: 20061115
  Receipt Date: 20060703
  Transmission Date: 20070319
  Serious: No
  Sender: FDA-Public Use
  Company Number: 200614534BWH

PATIENT
  Age: 53 Year
  Sex: Female

DRUGS (2)
  1. NEXAVAR [Suspect]
     Indication: HEPATIC NEOPLASM MALIGNANT
     Dosage: 400 MG, BID, ORAL; 200 MG, BID, ORAL
     Route: 048
     Dates: start: 20060627, end: 20060101
  2. NEXAVAR [Suspect]
     Indication: HEPATIC NEOPLASM MALIGNANT
     Dosage: 400 MG, BID, ORAL; 200 MG, BID, ORAL
     Route: 048
     Dates: start: 20060701

REACTIONS (10)
  - ABDOMINAL PAIN UPPER [None]
  - AGEUSIA [None]
  - ALOPECIA [None]
  - BLISTER [None]
  - CONSTIPATION [None]
  - DIARRHOEA [None]
  - DYSGEUSIA [None]
  - FEELING HOT [None]
  - HYPOGEUSIA [None]
  - PALMAR-PLANTAR ERYTHRODYSAESTHESIA SYNDROME [None]
